FAERS Safety Report 21603189 (Version 1)
Quarter: 2022Q4

REPORT INFORMATION
  Report Type: Spontaneous
  Country: US (occurrence: US)
  Receive Date: 20221116
  Receipt Date: 20221116
  Transmission Date: 20230112
  Serious: No
  Sender: FDA-Public Use
  Company Number: US-ANTARES PHARMA, INC.-2022-SPO-TX-0594

PATIENT

DRUGS (3)
  1. XYOSTED [Suspect]
     Active Substance: TESTOSTERONE ENANTHATE
     Indication: Product used for unknown indication
     Dosage: 100 MG/0.5ML, QWK
     Route: 058
  2. XYOSTED [Suspect]
     Active Substance: TESTOSTERONE ENANTHATE
     Dosage: 100 MG/0.5ML, Q2WEEKS
     Route: 058
  3. XYOSTED [Suspect]
     Active Substance: TESTOSTERONE ENANTHATE
     Dosage: 100 MG/0.5ML, QWK
     Route: 058

REACTIONS (2)
  - Blood pressure increased [Recovered/Resolved]
  - Off label use [Recovered/Resolved]
